FAERS Safety Report 5744266-4 (Version None)
Quarter: 2008Q2

REPORT INFORMATION
  Report Type: 
  Country: None (occurrence: None)
  Receive Date: 20080520
  Receipt Date: 20080513
  Transmission Date: 20081010
  Serious: Yes (Other)
  Sender: FDA-Public Use
  Company Number: JP-MERCK-0804USA03924

PATIENT
  Age: 70 Year
  Sex: Female

DRUGS (5)
  1. ZETIA [Suspect]
     Indication: HYPERCHOLESTEROLAEMIA
     Route: 048
     Dates: start: 20080407, end: 20080409
  2. [THERAPY UNSPECIFIED] [Concomitant]
     Route: 065
     Dates: start: 20080402
  3. SERRAPEPTASE [Concomitant]
     Route: 065
     Dates: start: 20080402
  4. AMBROXOL HYDROCHLORIDE [Concomitant]
     Route: 065
     Dates: start: 20080402
  5. DEQUALINIUM CHLORIDE [Concomitant]
     Route: 065
     Dates: start: 20080402

REACTIONS (1)
  - VISUAL FIELD DEFECT [None]
